FAERS Safety Report 5639892-7 (Version None)
Quarter: 2008Q1

REPORT INFORMATION
  Report Type: 
  Country: None (occurrence: None)
  Receive Date: 20080227
  Receipt Date: 20080220
  Transmission Date: 20080703
  Serious: Yes (Other)
  Sender: FDA-Public Use
  Company Number: DE-JNJFOC-20080202664

PATIENT
  Sex: Male
  Weight: 74 kg

DRUGS (4)
  1. RISPERDAL [Suspect]
     Indication: DELUSIONAL DISORDER, PERSECUTORY TYPE
     Route: 048
  2. MAGNESIUM VERLA [Concomitant]
     Indication: DRUG WITHDRAWAL SYNDROME
     Route: 048
  3. AKINETON [Concomitant]
     Indication: EXTRAPYRAMIDAL DISORDER
     Route: 048
  4. PANTOZOL [Concomitant]

REACTIONS (3)
  - EXTRAPYRAMIDAL DISORDER [None]
  - TRANSAMINASES INCREASED [None]
  - VIRAL LOAD INCREASED [None]
